FAERS Safety Report 9592495 (Version 1)
Quarter: 2013Q3

REPORT INFORMATION
  Report Type: Spontaneous
  Country: US (occurrence: None)
  Receive Date: 20130923
  Receipt Date: 20130923
  Transmission Date: 20140515
  Serious: Yes (Death)
  Sender: FDA-Public Use
  Company Number: 2012ST000587

PATIENT
  Age: 36 Year
  Sex: Female

DRUGS (1)
  1. MATULANE [Suspect]
     Indication: ANAPLASTIC OLIGODENDROGLIOMA
     Dosage: HS
     Route: 048
     Dates: start: 2011, end: 201207

REACTIONS (1)
  - Malignant neoplasm progression [None]
